FAERS Safety Report 7435035-8 (Version None)
Quarter: 2011Q2

REPORT INFORMATION
  Report Type: 
  Country: None (occurrence: None)
  Receive Date: 20110425
  Receipt Date: 20110412
  Transmission Date: 20111010
  Serious: Yes (Hospitalization, Other)
  Sender: FDA-Public Use
  Company Number: PHHY2010NL52137

PATIENT
  Sex: Male

DRUGS (20)
  1. ZOMETA [Suspect]
     Dosage: 4 MG/ 5ML
     Dates: start: 20100520
  2. ZOMETA [Suspect]
     Dosage: 4 MG/ 5ML
     Dates: start: 20100705
  3. ZOMETA [Suspect]
     Dosage: 4MG/5ML
     Route: 042
     Dates: start: 20110412
  4. ACETAMINOPHEN [Concomitant]
  5. ZOLADEX [Concomitant]
  6. ZOMETA [Suspect]
     Dosage: 4 MG/ 5ML
     Dates: start: 20100831
  7. METOPROLOL [Concomitant]
  8. TAMSULOSIN [Concomitant]
     Dosage: UNK
  9. ZOMETA [Suspect]
     Indication: PROSTATE CANCER METASTATIC
     Dosage: 4 MG/ 5ML
     Dates: start: 20100319
  10. ZOMETA [Suspect]
     Dosage: 4 MG/ 5ML
     Dates: start: 20100805
  11. ZOMETA [Suspect]
     Dosage: 4 MG/ 5ML
     Dates: start: 20101123
  12. ZOMETA [Suspect]
     Dosage: 4 MG/ 5ML
     Dates: start: 20100416
  13. ZOMETA [Suspect]
     Dosage: 4MG /5 ML
     Dates: start: 20110314
  14. OXAZEPAM [Concomitant]
  15. ZOMETA [Suspect]
     Dosage: 4 MG/5 ML
     Dates: start: 20110214
  16. PREDNISONE [Concomitant]
  17. MOVICOLON [Concomitant]
     Dosage: WHEN NEEDED
  18. NEXIUM [Concomitant]
  19. ZOMETA [Suspect]
     Dosage: 4 MG/ 5ML
     Dates: start: 20101220
  20. AMLODIPINE [Concomitant]

REACTIONS (8)
  - MALAISE [None]
  - MUSCULOSKELETAL PAIN [None]
  - BACK PAIN [None]
  - PLEURAL EFFUSION [None]
  - METASTASES TO BONE [None]
  - MUSCULOSKELETAL CHEST PAIN [None]
  - BONE PAIN [None]
  - FEELING COLD [None]
